FAERS Safety Report 6259913-0 (Version None)
Quarter: 2009Q3

REPORT INFORMATION
  Report Type: 
  Country: None (occurrence: None)
  Receive Date: 20090708
  Receipt Date: 20090623
  Transmission Date: 20100115
  Serious: Yes (Other)
  Sender: FDA-Public Use
  Company Number: PHHY2009CR25389

PATIENT
  Sex: Male

DRUGS (1)
  1. EXFORGE [Suspect]
     Route: 048

REACTIONS (5)
  - DRUG INEFFECTIVE [None]
  - GASTRITIS [None]
  - HIATUS HERNIA [None]
  - HYPERSENSITIVITY [None]
  - HYPERTENSION [None]
